FAERS Safety Report 9883578 (Version 2)
Quarter: 2014Q1

REPORT INFORMATION
  Report Type: Spontaneous
  Country: US (occurrence: US)
  Receive Date: 20140210
  Receipt Date: 20140214
  Transmission Date: 20141002
  Serious: Yes (Other)
  Sender: FDA-Public Use
  Company Number: US-ROCHE-1343034

PATIENT
  Age: 33 Year
  Sex: Female
  Weight: 74.91 kg

DRUGS (2)
  1. XOLAIR [Suspect]
     Indication: ASTHMA
     Route: 058
     Dates: start: 20140127
  2. XOLAIR [Suspect]
     Indication: URTICARIA

REACTIONS (8)
  - Flushing [Unknown]
  - Chest discomfort [Recovering/Resolving]
  - Dizziness [Unknown]
  - Dyspnoea [Recovered/Resolved]
  - Dysphagia [Recovered/Resolved]
  - Gastrointestinal pain [Recovering/Resolving]
  - Nausea [Unknown]
  - Anaphylactic reaction [Unknown]
